FAERS Safety Report 15939954 (Version 1)
Quarter: 2019Q1

REPORT INFORMATION
  Report Type: Spontaneous
  Country: US (occurrence: US)
  Receive Date: 20190208
  Receipt Date: 20190208
  Transmission Date: 20190417
  Serious: Yes (Other)
  Sender: FDA-Public Use
  Company Number: US-TARO-2019TAR00065

PATIENT
  Age: 69 Year
  Sex: Male

DRUGS (1)
  1. FLUOCINONIDE GEL USP 0.05% [Suspect]
     Active Substance: FLUOCINONIDE
     Dosage: UNK
     Route: 061

REACTIONS (2)
  - Application site pain [Recovered/Resolved]
  - Skin cancer [Not Recovered/Not Resolved]

NARRATIVE: CASE EVENT DATE: 201707
